FAERS Safety Report 19155215 (Version 2)
Quarter: 2021Q2

REPORT INFORMATION
  Report Type: Not Available
  Country: US (occurrence: None)
  Receive Date: 20210419
  Receipt Date: 20210420
  Transmission Date: 20210717
  Serious: No
  Sender: FDA-Public Use
  Company Number: US-AKORN-165582

PATIENT
  Sex: Male

DRUGS (1)
  1. HYDROCORTISONE AND ACETIC ACID OTIC SOLUTION, USP [Suspect]
     Active Substance: ACETIC ACID\HYDROCORTISONE

REACTIONS (4)
  - Eye irritation [Recovered/Resolved]
  - Incorrect route of product administration [Recovered/Resolved]
  - Vision blurred [Recovered/Resolved]
  - Off label use [Recovered/Resolved]
